FAERS Safety Report 25651334 (Version 1)
Quarter: 2025Q3

REPORT INFORMATION
  Report Type: Spontaneous
  Country: EU (occurrence: EU)
  Receive Date: 20250806
  Receipt Date: 20250806
  Transmission Date: 20251020
  Serious: Yes (Hospitalization)
  Sender: ETHYPHARM
  Company Number: None

PATIENT
  Age: 33 Year
  Sex: Male

DRUGS (8)
  1. NICOTINE\TOBACCO LEAF [Suspect]
     Active Substance: NICOTINE\TOBACCO LEAF
     Indication: Tobacco user
     Route: 055
     Dates: start: 1997
  2. ALCOHOL [Suspect]
     Active Substance: ALCOHOL
     Indication: Alcohol abuse
     Route: 048
     Dates: start: 1994
  3. CANNABIS SATIVA SUBSP. INDICA TOP [Suspect]
     Active Substance: CANNABIS SATIVA SUBSP. INDICA TOP
     Indication: Drug abuse
     Route: 055
     Dates: end: 2004
  4. HEROIN [Suspect]
     Active Substance: DIAMORPHINE
     Indication: Drug dependence
     Route: 045
     Dates: start: 2004, end: 2010
  5. BUPRENORPHINE [Suspect]
     Active Substance: BUPRENORPHINE
     Indication: Product used for unknown indication
     Dates: start: 2010
  6. COCAINE [Suspect]
     Active Substance: COCAINE
     Indication: Drug abuse
     Dates: start: 2015, end: 2015
  7. LYSERGIDE [Suspect]
     Active Substance: LYSERGIDE
     Indication: Drug abuse
     Dates: start: 2015, end: 2015
  8. MIDOMAFETAMINE [Suspect]
     Active Substance: MIDOMAFETAMINE
     Indication: Drug abuse
     Dates: start: 2015, end: 2015

REACTIONS (5)
  - Alcohol abuse [Recovering/Resolving]
  - Drug abuse [Recovered/Resolved]
  - Drug abuse [Recovering/Resolving]
  - Intentional product misuse [Recovered/Resolved]
  - Drug abuse [Recovering/Resolving]
